FAERS Safety Report 6895218-2 (Version None)
Quarter: 2010Q3

REPORT INFORMATION
  Report Type: 
  Country: None (occurrence: None)
  Receive Date: 20100802
  Receipt Date: 20100722
  Transmission Date: 20110219
  Serious: Yes (Hospitalization)
  Sender: FDA-Public Use
  Company Number: PHHO2010NL10250

PATIENT
  Sex: Male

DRUGS (11)
  1. BLINDED ALISKIREN ALI+TAB+CF [Suspect]
     Indication: CARDIAC FAILURE
     Dosage: CODE NOT BROKEN
     Route: 048
     Dates: start: 20091101
  2. BLINDED ENALAPRIL COMP-ENA+ [Suspect]
     Indication: CARDIAC FAILURE
     Dosage: CODE NOT BROKEN
     Route: 048
     Dates: start: 20091101
  3. BLINDED NO TREATMENT RECEIVED NOMED [Suspect]
     Indication: CARDIAC FAILURE
     Dosage: CODE NOT BROKEN
     Route: 048
     Dates: start: 20091101
  4. ALISKIREN [Suspect]
     Indication: CARDIAC FAILURE
     Dosage: 300 MG, QD
     Route: 048
     Dates: start: 20091001
  5. COMPARATOR ENALAPRIL [Suspect]
     Indication: CARDIAC FAILURE
     Dosage: UNK
     Route: 048
     Dates: start: 20090910
  6. LASIX [Concomitant]
  7. LIPITOR [Concomitant]
  8. CORDARONE [Concomitant]
  9. ASCAL [Concomitant]
  10. SPIRIVA [Concomitant]
  11. PLAVIX [Concomitant]

REACTIONS (3)
  - CARDIAC ASTHMA [None]
  - DISEASE PROGRESSION [None]
  - DYSPNOEA [None]
